FAERS Safety Report 24291421 (Version 1)
Quarter: 2024Q3

REPORT INFORMATION
  Report Type: Spontaneous
  Country: US (occurrence: None)
  Receive Date: 20240906
  Receipt Date: 20240906
  Transmission Date: 20241017
  Serious: No
  Sender: DOMPE FARMACEUTICI
  Company Number: US-FARMAPROD-202308-2628

PATIENT
  Sex: Female
  Weight: 81.65 kg

DRUGS (7)
  1. OXERVATE [Suspect]
     Active Substance: CENEGERMIN-BKBJ
     Indication: Neurotrophic keratopathy
     Route: 047
     Dates: start: 20230821
  2. OXERVATE [Suspect]
     Active Substance: CENEGERMIN-BKBJ
     Indication: Hypoaesthesia eye
  3. LUBRICATING EYE [Concomitant]
     Active Substance: MINERAL OIL\PETROLATUM
     Dosage: 0.3 %-0.4%
  4. NIFEDIPINE [Concomitant]
     Active Substance: NIFEDIPINE
  5. LABETALOL HYDROCHLORIDE [Concomitant]
     Active Substance: LABETALOL\LABETALOL HYDROCHLORIDE
  6. IBUPROFEN [Concomitant]
     Active Substance: IBUPROFEN
  7. CEPHALEXIN [Concomitant]
     Active Substance: CEPHALEXIN

REACTIONS (5)
  - Dizziness [Unknown]
  - Eye pain [Unknown]
  - Vision blurred [Unknown]
  - Headache [Unknown]
  - Fatigue [Unknown]
